FAERS Safety Report 5809724-2 (Version None)
Quarter: 2008Q3

REPORT INFORMATION
  Report Type: 
  Country: None (occurrence: None)
  Receive Date: 20080714
  Receipt Date: 20080714
  Transmission Date: 20090109
  Serious: Yes (Hospitalization)
  Sender: FDA-Public Use
  Company Number: None

PATIENT
  Age: 62 Year
  Sex: Female

DRUGS (17)
  1. BACTRIM DS [Suspect]
     Indication: PNEUMONIA
     Dosage: 160/800 TID PO
     Route: 048
     Dates: start: 20060912, end: 20060915
  2. CEFEPIME [Suspect]
     Indication: PNEUMONIA
     Dosage: 2 G Q12 IV
     Route: 042
     Dates: start: 20060915, end: 20060920
  3. SOLU-CORTEF [Concomitant]
  4. DIFLUCAN [Concomitant]
  5. IMMUNE GLOBULIN INTRAVENOUS (HUMAN) [Concomitant]
  6. INSULIN [Concomitant]
  7. ATROVENT [Concomitant]
  8. SYNTHROID [Concomitant]
  9. PROTONIX [Concomitant]
  10. AVELOX [Concomitant]
  11. CEFEPIME [Concomitant]
  12. MEDROL [Concomitant]
  13. FLORINEF [Concomitant]
  14. FENTANYL-100 [Concomitant]
  15. FLAGYL [Concomitant]
  16. PROTONIX [Concomitant]
  17. AMBIEN [Concomitant]

REACTIONS (1)
  - THROMBOCYTOPENIA [None]
